FAERS Safety Report 7918020-9 (Version None)
Quarter: 2011Q4

REPORT INFORMATION
  Report Type: 
  Country: None (occurrence: None)
  Receive Date: 20111116
  Receipt Date: 20111109
  Transmission Date: 20120403
  Serious: Yes (Other)
  Sender: FDA-Public Use
  Company Number: JP-MERCK-1111USA01608

PATIENT
  Age: 62 Year
  Sex: Female

DRUGS (3)
  1. SINEMET [Suspect]
     Route: 048
     Dates: start: 20100301
  2. SINEMET [Suspect]
     Dosage: AFTER LUNCH, AFTER DINNER
     Route: 048
     Dates: start: 20100101
  3. SINEMET [Suspect]
     Indication: PARKINSON'S DISEASE
     Dosage: 150 MG AFTER BREAKFAST, 150 MG AFTER LUNCH, 100 MG AFTER DINNER
     Route: 048
     Dates: start: 20100401, end: 20100501

REACTIONS (2)
  - ROAD TRAFFIC ACCIDENT [None]
  - SUDDEN ONSET OF SLEEP [None]
